FAERS Safety Report 7069726-8 (Version None)
Quarter: 2010Q4

REPORT INFORMATION
  Report Type: 
  Country: None (occurrence: None)
  Receive Date: 20101028
  Receipt Date: 20100520
  Transmission Date: 20110411
  Serious: Yes (Other)
  Sender: FDA-Public Use
  Company Number: US-WYE-H15256110

PATIENT
  Age: 75 Year

DRUGS (1)
  1. CORDARONE [Suspect]

REACTIONS (1)
  - OPTIC NEURITIS [None]
